FAERS Safety Report 18140639 (Version 3)
Quarter: 2020Q4

REPORT INFORMATION
  Report Type: Report from Study
  Country: None (occurrence: US)
  Receive Date: 20200812
  Receipt Date: 20201206
  Transmission Date: 20210113
  Serious: Yes (Hospitalization, Other)
  Sender: FDA-Public Use
  Company Number: US-ABBVIE-20K-163-3492235-00

PATIENT
  Age: 66 Year
  Sex: Female
  Weight: 59.02 kg

DRUGS (24)
  1. PREDNISONE. [Concomitant]
     Active Substance: PREDNISONE
     Indication: RHEUMATOID ARTHRITIS
  2. DOXYCYCLINE. [Concomitant]
     Active Substance: DOXYCYCLINE
     Indication: RHEUMATOID ARTHRITIS
  3. BABY ASPIRIN [Concomitant]
     Active Substance: ASPIRIN
     Indication: PRODUCT USED FOR UNKNOWN INDICATION
  4. METHOTREXATE. [Concomitant]
     Active Substance: METHOTREXATE
     Indication: RHEUMATOID ARTHRITIS
  5. NIFEDIPINE. [Concomitant]
     Active Substance: NIFEDIPINE
     Indication: RAYNAUD^S PHENOMENON
  6. VITAMIN D [Concomitant]
     Active Substance: VITAMIN D NOS
     Indication: PRODUCT USED FOR UNKNOWN INDICATION
  7. AMBIEN [Concomitant]
     Active Substance: ZOLPIDEM TARTRATE
     Indication: SLEEP DISORDER
  8. RINVOQ [Suspect]
     Active Substance: UPADACITINIB
     Route: 048
     Dates: start: 202006, end: 202007
  9. PERCOCET [Concomitant]
     Active Substance: ACETAMINOPHEN\OXYCODONE HYDROCHLORIDE
     Indication: PAIN
  10. GABAPENTIN. [Concomitant]
     Active Substance: GABAPENTIN
     Indication: PRODUCT USED FOR UNKNOWN INDICATION
  11. CALCIUM CITRATE [Concomitant]
     Active Substance: CALCIUM CITRATE
     Indication: PRODUCT USED FOR UNKNOWN INDICATION
  12. PRILOSEC [Concomitant]
     Active Substance: OMEPRAZOLE MAGNESIUM
     Indication: PRODUCT USED FOR UNKNOWN INDICATION
  13. SULFASALAZINE. [Concomitant]
     Active Substance: SULFASALAZINE
     Indication: RHEUMATOID ARTHRITIS
  14. VITAMIN B12 [Concomitant]
     Active Substance: CYANOCOBALAMIN
     Indication: PRODUCT USED FOR UNKNOWN INDICATION
  15. BACLOFEN. [Concomitant]
     Active Substance: BACLOFEN
     Indication: PAIN
  16. FOSAMAX [Concomitant]
     Active Substance: ALENDRONATE SODIUM
     Indication: PRODUCT USED FOR UNKNOWN INDICATION
  17. LEVOTHYROXINE. [Concomitant]
     Active Substance: LEVOTHYROXINE
     Indication: PRODUCT USED FOR UNKNOWN INDICATION
  18. RINVOQ [Suspect]
     Active Substance: UPADACITINIB
     Indication: RHEUMATOID ARTHRITIS
     Route: 048
     Dates: start: 2019, end: 202005
  19. FOLIC ACID. [Concomitant]
     Active Substance: FOLIC ACID
     Indication: PRODUCT USED FOR UNKNOWN INDICATION
  20. PREVIDENT [Concomitant]
     Active Substance: SODIUM FLUORIDE
     Indication: DRY MOUTH
  21. PLAQUENIL [Concomitant]
     Active Substance: HYDROXYCHLOROQUINE SULFATE
     Indication: RHEUMATOID ARTHRITIS
  22. RINVOQ [Suspect]
     Active Substance: UPADACITINIB
     Route: 048
     Dates: start: 202007
  23. METHOCARBAMOL. [Concomitant]
     Active Substance: METHOCARBAMOL
     Indication: PRODUCT USED FOR UNKNOWN INDICATION
  24. NORTRIPTYLINE [Concomitant]
     Active Substance: NORTRIPTYLINE
     Indication: PRODUCT USED FOR UNKNOWN INDICATION

REACTIONS (10)
  - Postoperative thrombosis [Recovered/Resolved]
  - Gait disturbance [Recovered/Resolved]
  - Gastric disorder [Unknown]
  - Peripheral swelling [Recovering/Resolving]
  - Surgery [Unknown]
  - Thrombosis [Recovering/Resolving]
  - Back pain [Recovering/Resolving]
  - Pain in extremity [Recovering/Resolving]
  - Fractured sacrum [Not Recovered/Not Resolved]
  - Dysuria [Recovered/Resolved]

NARRATIVE: CASE EVENT DATE: 2020
